FAERS Safety Report 6223407-9 (Version None)
Quarter: 2009Q2

REPORT INFORMATION
  Report Type: 
  Country: None (occurrence: None)
  Receive Date: 20090609
  Receipt Date: 20090529
  Transmission Date: 20091009
  Serious: Yes (Death, Hospitalization, Other)
  Sender: FDA-Public Use
  Company Number: 61018

PATIENT
  Age: 16 Year
  Sex: Male

DRUGS (2)
  1. CYTARABINE [Suspect]
     Indication: ACUTE PROMYELOCYTIC LEUKAEMIA
  2. DAUNORUBICIN HCL, INC. 20MG/4ML [Suspect]
     Indication: ACUTE PROMYELOCYTIC LEUKAEMIA

REACTIONS (14)
  - CONDITION AGGRAVATED [None]
  - FEBRILE NEUTROPENIA [None]
  - FIBROSIS [None]
  - INFLAMMATION [None]
  - LEUKAEMIA [None]
  - LEUKAEMIA RECURRENT [None]
  - MEDIASTINAL MASS [None]
  - MUCOSAL INFLAMMATION [None]
  - NAUSEA [None]
  - OESOPHAGEAL STENOSIS [None]
  - RENAL FAILURE ACUTE [None]
  - RESPIRATORY DISTRESS [None]
  - TUMOUR LYSIS SYNDROME [None]
  - VOMITING [None]
